FAERS Safety Report 18048167 (Version 3)
Quarter: 2021Q1

REPORT INFORMATION
  Report Type: Spontaneous
  Country: US (occurrence: US)
  Receive Date: 20200721
  Receipt Date: 20210318
  Transmission Date: 20210419
  Serious: Yes (Other)
  Sender: FDA-Public Use
  Company Number: US-GLAXOSMITHKLINE-US2020136952

PATIENT
  Sex: Male

DRUGS (9)
  1. RANITIDINE CAPSULE [Suspect]
     Active Substance: RANITIDINE
     Indication: GASTRIC ULCER
     Dosage: 150 MG, BOTH DAILY
     Route: 065
     Dates: start: 198101, end: 201001
  2. ZANTAC [Suspect]
     Active Substance: RANITIDINE HYDROCHLORIDE
  3. ZANTAC [Suspect]
     Active Substance: RANITIDINE HYDROCHLORIDE
     Indication: GASTRIC ULCER
     Dosage: 75 MG, BOTH DAILY
     Route: 065
     Dates: start: 198101, end: 201001
  4. RANITIDINE. [Suspect]
     Active Substance: RANITIDINE
  5. RANITIDINE HCI [Suspect]
     Active Substance: RANITIDINE HYDROCHLORIDE
  6. RANITIDINE HYDROCHLORIDE. [Suspect]
     Active Substance: RANITIDINE HYDROCHLORIDE
     Indication: GASTRIC ULCER
     Dosage: 150 MG BOTH DAILY
     Route: 065
     Dates: start: 198101, end: 201001
  7. ZANTAC [Suspect]
     Active Substance: RANITIDINE HYDROCHLORIDE
     Indication: GASTRIC ULCER
     Dosage: 75 MG, BOTH DAILY
     Route: 065
     Dates: start: 198101, end: 201001
  8. RANITIDINE HYDROCHLORIDE. [Suspect]
     Active Substance: RANITIDINE HYDROCHLORIDE
     Indication: GASTRIC ULCER
     Dosage: 150 MG, BOTH DAILY
     Route: 065
     Dates: start: 198101, end: 201001
  9. RANITIDINE. [Suspect]
     Active Substance: RANITIDINE
     Indication: GASTRIC ULCER
     Dosage: 150 MG, BOTH DAILY
     Route: 065
     Dates: start: 198101, end: 201001

REACTIONS (1)
  - Prostate cancer [Unknown]
